FAERS Safety Report 25969754 (Version 1)
Quarter: 2025Q4

REPORT INFORMATION
  Report Type: Spontaneous
  Country: EG (occurrence: EG)
  Receive Date: 20251028
  Receipt Date: 20251028
  Transmission Date: 20260117
  Serious: Yes (Other)
  Sender: MYLAN
  Company Number: EG-MYLANLABS-2025M1090699

PATIENT
  Age: 21 Year
  Sex: Female

DRUGS (1)
  1. LUSTRAL [Suspect]
     Active Substance: SERTRALINE HYDROCHLORIDE
     Indication: Generalised anxiety disorder
     Dosage: 50 MILLIGRAM, QD (ONCE DAILY)

REACTIONS (3)
  - Hyperprolactinaemia [Unknown]
  - Menstruation irregular [Unknown]
  - Breast tenderness [Unknown]
